FAERS Safety Report 25304520 (Version 1)
Quarter: 2025Q2

REPORT INFORMATION
  Report Type: Spontaneous
  Country: CN (occurrence: CN)
  Receive Date: 20250513
  Receipt Date: 20250513
  Transmission Date: 20250717
  Serious: Yes (Other)
  Sender: ACCORD
  Company Number: CN-Accord-483959

PATIENT
  Age: 48 Year
  Sex: Male

DRUGS (5)
  1. AZACITIDINE [Suspect]
     Active Substance: AZACITIDINE
     Indication: Peripheral T-cell lymphoma unspecified stage IV
  2. BORTEZOMIB [Suspect]
     Active Substance: BORTEZOMIB
     Indication: Peripheral T-cell lymphoma unspecified stage IV
  3. TUCIDINOSTAT [Suspect]
     Active Substance: TUCIDINOSTAT
     Indication: Peripheral T-cell lymphoma unspecified stage IV
  4. CYCLOPHOSPHAMIDE [Suspect]
     Active Substance: CYCLOPHOSPHAMIDE
     Indication: Peripheral T-cell lymphoma unspecified stage IV
  5. DEXAMETHASONE [Suspect]
     Active Substance: DEXAMETHASONE
     Indication: Peripheral T-cell lymphoma unspecified stage IV

REACTIONS (1)
  - Pneumocystis jirovecii pneumonia [Recovered/Resolved]
